FAERS Safety Report 8836818 (Version 1)
Quarter: 2012Q4

REPORT INFORMATION
  Report Type: 
  Country: FR (occurrence: None)
  Receive Date: 20121010
  Receipt Date: 20121010
  Transmission Date: 20130627
  Serious: Yes (Hospitalization)
  Sender: FDA-Public Use
  Company Number: DSM-2012-01058

PATIENT
  Age: 54 Year
  Sex: Male

DRUGS (6)
  1. SEVIKAR [Suspect]
     Dosage: (1 Dosage forms, 1 in 1 D)
     Route: 048
     Dates: start: 2012, end: 20120824
  2. ABILIFY [Suspect]
     Dosage: 30 mg 
more than 2 years ago
     Route: 048
  3. EFFEXOR [Suspect]
     Route: 048
  4. ANAFRANIL [Suspect]
     Dosage: more than 2 years ago
     Route: 048
  5. ADENURIC [Concomitant]
  6. LIPANTHYL [Concomitant]

REACTIONS (5)
  - Dehydration [None]
  - Renal failure [None]
  - Orthostatic hypotension [None]
  - Asthenia [None]
  - Mucosal dryness [None]
